FAERS Safety Report 19856408 (Version 1)
Quarter: 2021Q3

REPORT INFORMATION
  Report Type: Spontaneous
  Country: BR (occurrence: BR)
  Receive Date: 20210920
  Receipt Date: 20210920
  Transmission Date: 20211014
  Serious: Yes (Other)
  Sender: FDA-Public Use
  Company Number: NVSC2021BR193199

PATIENT
  Sex: Female

DRUGS (1)
  1. KISQALI [Suspect]
     Active Substance: RIBOCICLIB
     Indication: BREAST CANCER
     Dosage: UNK
     Route: 065
     Dates: start: 201911

REACTIONS (6)
  - Neutrophil count abnormal [Unknown]
  - Decreased immune responsiveness [Unknown]
  - Metastases to lung [Unknown]
  - Mucosal dryness [Unknown]
  - Neoplasm [Unknown]
  - Alopecia [Unknown]
